FAERS Safety Report 6779432-2 (Version None)
Quarter: 2010Q2

REPORT INFORMATION
  Report Type: 
  Country: None (occurrence: None)
  Receive Date: 20100618
  Receipt Date: 20100614
  Transmission Date: 20101027
  Serious: Yes (Other)
  Sender: FDA-Public Use
  Company Number: JP-ROXANE LABORATORIES, INC.-2010-RO-00724RO

PATIENT
  Age: 78 Year
  Sex: Male

DRUGS (5)
  1. CYCLOPHOSPHAMIDE [Suspect]
     Indication: LYMPHOPROLIFERATIVE DISORDER
  2. PREDNISONE [Suspect]
     Indication: LYMPHOPROLIFERATIVE DISORDER
  3. RITUXIMAB [Suspect]
     Indication: LYMPHOPROLIFERATIVE DISORDER
  4. PIRARUBICIN [Suspect]
     Indication: LYMPHOPROLIFERATIVE DISORDER
  5. VINCRISTINE [Suspect]
     Indication: LYMPHOPROLIFERATIVE DISORDER

REACTIONS (1)
  - TYPE 2 DIABETES MELLITUS [None]
